FAERS Safety Report 11540779 (Version 1)
Quarter: 2015Q3

REPORT INFORMATION
  Report Type: Spontaneous
  Country: EC (occurrence: EC)
  Receive Date: 20150923
  Receipt Date: 20150923
  Transmission Date: 20151125
  Serious: Yes (Other)
  Sender: FDA-Public Use
  Company Number: EC-GLAXOSMITHKLINE-EC2015GSK106823

PATIENT
  Age: 87 Year
  Sex: Male

DRUGS (1)
  1. DUODART [Suspect]
     Active Substance: DUTASTERIDE\TAMSULOSIN
     Indication: PRODUCT USED FOR UNKNOWN INDICATION
     Dosage: UNK
     Route: 048

REACTIONS (5)
  - Hyponatraemia [Recovered/Resolved]
  - Pollakiuria [Recovered/Resolved]
  - Inappropriate antidiuretic hormone secretion [Unknown]
  - Hypotension [Recovered/Resolved]
  - Nocturia [Recovered/Resolved]
